FAERS Safety Report 5606563-2 (Version None)
Quarter: 2008Q1

REPORT INFORMATION
  Report Type: 
  Country: None (occurrence: None)
  Receive Date: 20080129
  Receipt Date: 20080123
  Transmission Date: 20080703
  Serious: Yes (Hospitalization)
  Sender: FDA-Public Use
  Company Number: FR-AVENTIS-200810346FR

PATIENT
  Age: 51 Year
  Sex: Female

DRUGS (7)
  1. LASILIX                            /00032601/ [Suspect]
     Route: 042
     Dates: start: 20071024, end: 20071025
  2. CISPLATINE MERCK [Suspect]
     Route: 042
     Dates: start: 20071022, end: 20071026
  3. FLUOROURACILE TEVA [Suspect]
     Route: 042
     Dates: start: 20071022, end: 20071026
  4. PLITICAN [Suspect]
     Route: 042
     Dates: start: 20071022, end: 20071026
  5. SOLU-MEDROL [Suspect]
     Route: 042
     Dates: start: 20071022, end: 20071026
  6. ZOPHREN                            /00955301/ [Suspect]
     Route: 042
     Dates: start: 20071022, end: 20071026
  7. EMEND [Concomitant]

REACTIONS (2)
  - CONVULSION [None]
  - HYPOCALCAEMIA [None]
